FAERS Safety Report 21542646 (Version 3)
Quarter: 2023Q1

REPORT INFORMATION
  Report Type: Spontaneous
  Country: US (occurrence: US)
  Receive Date: 20221102
  Receipt Date: 20230323
  Transmission Date: 20230417
  Serious: Yes (Other)
  Sender: FDA-Public Use
  Company Number: US-PFIZER INC-PV202200095257

PATIENT
  Age: 79 Year
  Sex: Male
  Weight: 60.33 kg

DRUGS (2)
  1. VYNDAMAX [Suspect]
     Active Substance: TAFAMIDIS
     Dosage: 61 MG, 1X/DAY (61MG CAPSULE ONCE A DAY IN THE MORNING)
     Dates: start: 2022
  2. ELIQUIS [Concomitant]
     Active Substance: APIXABAN
     Dosage: 2.5 MG, EVERY 12 HOURS

REACTIONS (4)
  - Carpal tunnel syndrome [Unknown]
  - Cardiac murmur [Unknown]
  - Peripheral swelling [Unknown]
  - Fatigue [Unknown]
